FAERS Safety Report 11419692 (Version 1)
Quarter: 2015Q3

REPORT INFORMATION
  Report Type: Report from Study
  Country: US (occurrence: US)
  Receive Date: 20150826
  Receipt Date: 20150826
  Transmission Date: 20151125
  Serious: Yes (Death, Hospitalization)
  Sender: FDA-Public Use
  Company Number: US-UNITED THERAPEUTICS-UTC-000057

PATIENT
  Age: 59 Year
  Sex: Female
  Weight: 113.6 kg

DRUGS (19)
  1. COUMADIN [Concomitant]
     Active Substance: WARFARIN SODIUM
     Indication: PULMONARY ARTERIAL HYPERTENSION
     Dosage: ONGOING
  2. VERAPAMIL [Concomitant]
     Active Substance: VERAPAMIL HYDROCHLORIDE
  3. TIOTROPIUM [Concomitant]
     Active Substance: TIOTROPIUM
  4. ZINC [Concomitant]
     Active Substance: ZINC\ZINC CHLORIDE
  5. FOLIC ACID. [Concomitant]
     Active Substance: FOLIC ACID
  6. UT-15C SR(SUSTAINED-RELEASE TABLET)(TREPROSTINIL DIETHANOLAMINE) [Suspect]
     Active Substance: TREPROSTINIL
     Indication: PULMONARY ARTERIAL HYPERTENSION
     Route: 048
     Dates: start: 20070718, end: 20070806
  7. TRACLEER [Concomitant]
     Active Substance: BOSENTAN
     Indication: PULMONARY ARTERIAL HYPERTENSION
     Dosage: ONGOING
     Dates: start: 200402
  8. OMEPRAZOLE. [Concomitant]
     Active Substance: OMEPRAZOLE
  9. SIMVASTATIN. [Concomitant]
     Active Substance: SIMVASTATIN
  10. COMPAZINE [Concomitant]
     Active Substance: PROCHLORPERAZINE MALEATE
  11. CALCIUM [Concomitant]
     Active Substance: CALCIUM
  12. MULTIVITAMIN [Concomitant]
     Active Substance: VITAMINS
  13. FLUTICASONE [Concomitant]
     Active Substance: FLUTICASONE\FLUTICASONE PROPIONATE
  14. LORAZEPAM. [Concomitant]
     Active Substance: LORAZEPAM
  15. ACETAMINOPHEN. [Concomitant]
     Active Substance: ACETAMINOPHEN
  16. BILBERRY [Concomitant]
     Active Substance: BILBERRY
  17. FUROSEMIDE. [Concomitant]
     Active Substance: FUROSEMIDE
  18. VENLAFAXINE [Concomitant]
     Active Substance: VENLAFAXINE HYDROCHLORIDE
  19. SELENIUM [Concomitant]
     Active Substance: SELENIUM

REACTIONS (5)
  - Atrial flutter [Not Recovered/Not Resolved]
  - Cardiogenic shock [Fatal]
  - Respiratory distress [Not Recovered/Not Resolved]
  - Multi-organ failure [Fatal]
  - Cardiac tamponade [Not Recovered/Not Resolved]

NARRATIVE: CASE EVENT DATE: 20070807
